FAERS Safety Report 25035428 (Version 1)
Quarter: 2025Q1

REPORT INFORMATION
  Report Type: Report from Study
  Country: BR (occurrence: BR)
  Receive Date: 20250304
  Receipt Date: 20250304
  Transmission Date: 20250409
  Serious: Yes (Other)
  Sender: JOHNSON AND JOHNSON
  Company Number: BR-JNJFOC-20250277735

PATIENT
  Age: 59 Year
  Sex: Female
  Weight: 60 kg

DRUGS (2)
  1. INFLIXIMAB [Suspect]
     Active Substance: INFLIXIMAB
     Indication: Ankylosing spondylitis
     Route: 041
     Dates: end: 20241220
  2. SULFASALAZINE [Concomitant]
     Active Substance: SULFASALAZINE
     Indication: Product used for unknown indication

REACTIONS (8)
  - Ankylosing spondylitis [Unknown]
  - Influenza [Unknown]
  - Ear infection [Unknown]
  - Pharyngitis [Unknown]
  - Immune system disorder [Unknown]
  - Stress [Unknown]
  - Rhinitis [Unknown]
  - Drug ineffective [Unknown]
